FAERS Safety Report 10167833 (Version 2)
Quarter: 2014Q2

REPORT INFORMATION
  Report Type: Spontaneous
  Country: US (occurrence: US)
  Receive Date: 20140512
  Receipt Date: 20140616
  Transmission Date: 20141212
  Serious: Yes (Other)
  Sender: FDA-Public Use
  Company Number: US-PFIZER INC-2014129326

PATIENT
  Age: 55 Year
  Sex: Female
  Weight: 64.85 kg

DRUGS (3)
  1. LIPITOR [Suspect]
     Indication: LOW DENSITY LIPOPROTEIN INCREASED
     Dosage: 20 MG, DAILY
     Route: 048
     Dates: start: 199904, end: 200310
  2. LIPITOR [Suspect]
     Indication: CARDIOVASCULAR EVENT PROPHYLAXIS
     Dosage: 40 MG, DAILY
     Dates: start: 200310, end: 201212
  3. NIACIN [Concomitant]
     Indication: BLOOD TRIGLYCERIDES DECREASED
     Dosage: 1500 MG, DAILY
     Dates: start: 2003

REACTIONS (4)
  - Type 2 diabetes mellitus [Not Recovered/Not Resolved]
  - Cataract [Not Recovered/Not Resolved]
  - Blood glucose increased [Not Recovered/Not Resolved]
  - Nephropathy [Not Recovered/Not Resolved]
